FAERS Safety Report 15987318 (Version 1)
Quarter: 2019Q1

REPORT INFORMATION
  Report Type: Spontaneous
  Country: DE (occurrence: DE)
  Receive Date: 20190220
  Receipt Date: 20190220
  Transmission Date: 20190418
  Serious: Yes (Congenital Anomaly)
  Sender: FDA-Public Use
  Company Number: DE-ALLERGAN-1906686US

PATIENT
  Age: 0 Year
  Sex: Male
  Weight: 3.68 kg

DRUGS (4)
  1. CYTOTEC [Concomitant]
     Active Substance: MISOPROSTOL
     Indication: LABOUR INDUCTION
     Dosage: UNK
     Route: 064
  2. MESALAZINE UNK [Suspect]
     Active Substance: MESALAMINE
     Indication: MATERNAL EXPOSURE DURING PREGNANCY
     Dosage: 4000 [MG/D (BIS 2000 MG/D)]
     Route: 064
  3. L-THYROXIN [Concomitant]
     Active Substance: LEVOTHYROXINE SODIUM
     Indication: HYPOTHYROIDISM
     Dosage: 87.5 [?G/D (BIS 75 ?G/D) ]
     Route: 064
  4. INFLIXIMAB [Suspect]
     Active Substance: INFLIXIMAB
     Indication: MATERNAL EXPOSURE DURING PREGNANCY
     Dosage: 500 MG, EVERY 8 WEEKS
     Route: 064

REACTIONS (3)
  - Congenital vesicoureteric reflux [Not Recovered/Not Resolved]
  - Foetal exposure during pregnancy [Unknown]
  - Hypospadias [Not Recovered/Not Resolved]
